FAERS Safety Report 8513059 (Version 4)
Quarter: 2013Q1

REPORT INFORMATION
  Report Type: Spontaneous
  Country: US (occurrence: US)
  Receive Date: 20120413
  Receipt Date: 20130227
  Transmission Date: 20140127
  Serious: Yes (Other)
  Sender: FDA-Public Use
  Company Number: US-ELI_LILLY_AND_COMPANY-US201102005962

PATIENT
  Age: 76 Year
  Sex: Female

DRUGS (4)
  1. FORTEO [Suspect]
     Indication: OSTEOPOROSIS
     Dosage: 20 UG, QD
     Dates: start: 20110126
  2. FORTEO [Suspect]
     Dosage: 20 UG, QD
     Dates: end: 20120410
  3. FORTEO [Suspect]
     Dosage: 20 UG, QD
  4. PROLIA [Concomitant]

REACTIONS (10)
  - Femur fracture [Unknown]
  - Stress fracture [Unknown]
  - Musculoskeletal stiffness [Unknown]
  - Sleep disorder [Unknown]
  - Swelling face [Unknown]
  - Swelling [Unknown]
  - Poor quality drug administered [Unknown]
  - Middle insomnia [Unknown]
  - Pain [Unknown]
  - Fluid overload [Unknown]
